FAERS Safety Report 21713638 (Version 1)
Quarter: 2022Q4

REPORT INFORMATION
  Report Type: Spontaneous
  Country: US (occurrence: US)
  Receive Date: 20221212
  Receipt Date: 20221212
  Transmission Date: 20230113
  Serious: No
  Sender: FDA-Public Use
  Company Number: US-AMERICAN REGENT INC-2022000838

PATIENT
  Sex: Female
  Weight: 90.9 kg

DRUGS (48)
  1. VENOFER [Suspect]
     Active Substance: IRON SUCROSE
     Indication: Iron deficiency anaemia
     Dosage: 200 MG IN SODIUM CHLORIDE 0.9 % 100 ML, WEEKLY FOR 8 DOSES
     Route: 042
     Dates: start: 201702, end: 201704
  2. VENOFER [Suspect]
     Active Substance: IRON SUCROSE
     Indication: Sideroblastic anaemia
     Dosage: 200 MG IN SODIUM CHLORIDE 0.9 % 100 ML
     Route: 042
     Dates: start: 20170522, end: 20170522
  3. VENOFER [Suspect]
     Active Substance: IRON SUCROSE
     Dosage: 200 MG IN SODIUM CHLORIDE 0.9 % 100 ML, 5 DOSES
     Route: 042
     Dates: start: 201708, end: 201709
  4. VENOFER [Suspect]
     Active Substance: IRON SUCROSE
     Dosage: 200 MG IN SODIUM CHLORIDE 0.9 % 100 ML, WEEKLY
     Route: 042
     Dates: start: 201709, end: 201801
  5. VENOFER [Suspect]
     Active Substance: IRON SUCROSE
     Dosage: 200 MG IN SODIUM CHLORIDE 0.9 % 100 ML
     Route: 042
     Dates: start: 20180418, end: 20180418
  6. VENOFER [Suspect]
     Active Substance: IRON SUCROSE
     Dosage: 200 MG IN SODIUM CHLORIDE 0.9 % 100 ML
     Route: 042
     Dates: start: 20180424, end: 20180424
  7. VENOFER [Suspect]
     Active Substance: IRON SUCROSE
     Dosage: 200 MG IN SODIUM CHLORIDE 0.9 % 100 ML
     Route: 042
     Dates: start: 20180502, end: 20180502
  8. VENOFER [Suspect]
     Active Substance: IRON SUCROSE
     Dosage: 200 MG IN SODIUM CHLORIDE 0.9 % 100 ML
     Route: 042
     Dates: start: 20180514, end: 20180514
  9. VENOFER [Suspect]
     Active Substance: IRON SUCROSE
     Dosage: 200 MG IN SODIUM CHLORIDE 0.9 % 100 ML
     Route: 042
     Dates: start: 20180522, end: 20180522
  10. VENOFER [Suspect]
     Active Substance: IRON SUCROSE
     Dosage: 200 MG IN SODIUM CHLORIDE 0.9 % 100 ML
     Route: 042
     Dates: start: 20180529, end: 20180529
  11. VENOFER [Suspect]
     Active Substance: IRON SUCROSE
     Dosage: 200 MG IN SODIUM CHLORIDE 0.9 % 100 ML
     Route: 042
     Dates: start: 20180605, end: 20180605
  12. VENOFER [Suspect]
     Active Substance: IRON SUCROSE
     Dosage: 200 MG IN SODIUM CHLORIDE 0.9 % 100 ML
     Route: 042
     Dates: start: 20180612, end: 20180612
  13. VENOFER [Suspect]
     Active Substance: IRON SUCROSE
     Dosage: 200 MG IN SODIUM CHLORIDE 0.9 % 100 ML
     Route: 042
     Dates: start: 20180619, end: 20180619
  14. VENOFER [Suspect]
     Active Substance: IRON SUCROSE
     Dosage: 200 MG IN SODIUM CHLORIDE 0.9 % 100 ML
     Route: 042
     Dates: start: 20180703, end: 20180703
  15. VENOFER [Suspect]
     Active Substance: IRON SUCROSE
     Dosage: 200 MG IN SODIUM CHLORIDE 0.9 % 100 ML
     Route: 042
     Dates: start: 20180717, end: 20180717
  16. VENOFER [Suspect]
     Active Substance: IRON SUCROSE
     Dosage: 100 MILLIGRAM, WEEKLY
     Route: 042
     Dates: start: 2018, end: 2018
  17. VENOFER [Suspect]
     Active Substance: IRON SUCROSE
     Dosage: 200 MG IN SODIUM CHLORIDE 0.9 % 100 ML, 8 DOSES WEEKLY
     Route: 042
     Dates: start: 20181002, end: 20181120
  18. VENOFER [Suspect]
     Active Substance: IRON SUCROSE
     Dosage: 200 MG IN SODIUM CHLORIDE 0.9 % 100 ML, WEEKLY FOR 6 DOSES
     Route: 042
     Dates: start: 20190107, end: 20190212
  19. VENOFER [Suspect]
     Active Substance: IRON SUCROSE
     Dosage: 200 MG IN SODIUM CHLORIDE 0.9 % 100 ML
     Route: 042
     Dates: start: 20190402, end: 20190402
  20. VENOFER [Suspect]
     Active Substance: IRON SUCROSE
     Dosage: 200 MG IN SODIUM CHLORIDE 0.9 % 100 ML
     Route: 042
     Dates: start: 20190409, end: 20190409
  21. VENOFER [Suspect]
     Active Substance: IRON SUCROSE
     Dosage: 200 MG IN SODIUM CHLORIDE 0.9 % 100 ML
     Route: 042
     Dates: start: 20190416, end: 20190416
  22. VENOFER [Suspect]
     Active Substance: IRON SUCROSE
     Dosage: 200 MG IN SODIUM CHLORIDE 0.9 % 100 ML
     Route: 042
     Dates: start: 20190423, end: 20190423
  23. VENOFER [Suspect]
     Active Substance: IRON SUCROSE
     Dosage: 200 MG IN SODIUM CHLORIDE 0.9 % 100 ML
     Route: 042
     Dates: start: 20190430, end: 20190430
  24. VENOFER [Suspect]
     Active Substance: IRON SUCROSE
     Dosage: 200 MG IN SODIUM CHLORIDE 0.9 % 100 ML
     Route: 042
     Dates: start: 20190521, end: 20190521
  25. VENOFER [Suspect]
     Active Substance: IRON SUCROSE
     Dosage: 200 MG IN SODIUM CHLORIDE 0.9 % 100 ML
     Route: 042
     Dates: start: 20190618, end: 20190618
  26. VENOFER [Suspect]
     Active Substance: IRON SUCROSE
     Dosage: 200 MG IN SODIUM CHLORIDE 0.9 % 100 ML
     Route: 042
     Dates: start: 20190716, end: 20190716
  27. VENOFER [Suspect]
     Active Substance: IRON SUCROSE
     Dosage: 200 MG IN SODIUM CHLORIDE 0.9 % 100 ML
     Route: 042
     Dates: start: 20190813, end: 20190813
  28. VENOFER [Suspect]
     Active Substance: IRON SUCROSE
     Dosage: 200 MG IN SODIUM CHLORIDE 0.9 % 100 ML
     Route: 042
     Dates: start: 20190910, end: 20190910
  29. VENOFER [Suspect]
     Active Substance: IRON SUCROSE
     Dosage: 200 MG IN SODIUM CHLORIDE 0.9 % 100 ML
     Route: 042
     Dates: start: 20191008, end: 20191008
  30. VENOFER [Suspect]
     Active Substance: IRON SUCROSE
     Dosage: 200 MG IN SODIUM CHLORIDE 0.9 % 100 ML
     Route: 042
     Dates: start: 20191105, end: 20191105
  31. VENOFER [Suspect]
     Active Substance: IRON SUCROSE
     Dosage: 200 MG IN SODIUM CHLORIDE 0.9 % 100 ML
     Route: 042
     Dates: start: 20191203, end: 20191203
  32. VENOFER [Suspect]
     Active Substance: IRON SUCROSE
     Dosage: 200 MG IN SODIUM CHLORIDE 0.9 % 100 ML
     Route: 042
     Dates: start: 20191231, end: 20191231
  33. VENOFER [Suspect]
     Active Substance: IRON SUCROSE
     Dosage: 200 MG IN SODIUM CHLORIDE 0.9 % 100 ML
     Route: 042
     Dates: start: 20200115, end: 20200115
  34. VENOFER [Suspect]
     Active Substance: IRON SUCROSE
     Dosage: 200 MG IN SODIUM CHLORIDE 0.9 % 100 ML
     Route: 042
     Dates: start: 20200121, end: 20200121
  35. VENOFER [Suspect]
     Active Substance: IRON SUCROSE
     Dosage: 200 MG IN SODIUM CHLORIDE 0.9 % 100 ML
     Route: 042
     Dates: start: 20200204, end: 20200204
  36. VENOFER [Suspect]
     Active Substance: IRON SUCROSE
     Dosage: 200 MG IN SODIUM CHLORIDE 0.9 % 100 ML
     Route: 042
     Dates: start: 20200218, end: 20200218
  37. VENOFER [Suspect]
     Active Substance: IRON SUCROSE
     Dosage: 300 MG IN SODIUM CHLORIDE 0.9 % 250 ML
     Route: 042
     Dates: start: 20200225, end: 20200225
  38. VENOFER [Suspect]
     Active Substance: IRON SUCROSE
     Dosage: 300 MG IN SODIUM CHLORIDE 0.9 % 250 ML
     Route: 042
     Dates: start: 20200305, end: 20200305
  39. VENOFER [Suspect]
     Active Substance: IRON SUCROSE
     Dosage: 300 MG IN SODIUM CHLORIDE 0.9 % 250 ML
     Route: 042
     Dates: start: 20200317, end: 20200317
  40. VENOFER [Suspect]
     Active Substance: IRON SUCROSE
     Dosage: 300 MG IN SODIUM CHLORIDE 0.9 % 250 ML
     Route: 042
     Dates: start: 20200331, end: 20200331
  41. VENOFER [Suspect]
     Active Substance: IRON SUCROSE
     Dosage: 300 MG IN SODIUM CHLORIDE 0.9 % 250 ML
     Route: 042
     Dates: start: 20200414, end: 20200414
  42. VENOFER [Suspect]
     Active Substance: IRON SUCROSE
     Dosage: 300 MG IN SODIUM CHLORIDE 0.9 % 250 ML
     Route: 042
     Dates: start: 20200428, end: 20200428
  43. VENOFER [Suspect]
     Active Substance: IRON SUCROSE
     Dosage: 300 MG IN SODIUM CHLORIDE 0.9 % 250 ML
     Route: 042
     Dates: start: 20200512, end: 20200512
  44. CHOLECALCIFEROL [Concomitant]
     Active Substance: CHOLECALCIFEROL
     Indication: Product used for unknown indication
     Dosage: 1000 UNITS, QD
     Route: 048
  45. ONDANSETRON [Concomitant]
     Active Substance: ONDANSETRON
     Indication: Nausea
     Dosage: DISSOLVE 1 TABLET (8 MG TOTAL) ON TONGUE EVERY 8 (EIGHT) HOURS AS NEEDED
  46. ONDANSETRON [Concomitant]
     Active Substance: ONDANSETRON
     Indication: Vomiting
  47. PANTOPRAZOLE [Concomitant]
     Active Substance: PANTOPRAZOLE
     Indication: Product used for unknown indication
     Dosage: 40 MILLIGRAM, BID
     Route: 048
  48. METOCLOPRAMIDE [Concomitant]
     Active Substance: METOCLOPRAMIDE
     Indication: Product used for unknown indication
     Dosage: TAKE 5-10 MG 4 TIMES A DAY FOR 10 DAYS

REACTIONS (3)
  - Drug ineffective [Unknown]
  - Iron deficiency anaemia [Unknown]
  - Off label use [Unknown]

NARRATIVE: CASE EVENT DATE: 20170101
